FAERS Safety Report 21764878 (Version 1)
Quarter: 2022Q4

REPORT INFORMATION
  Report Type: Spontaneous
  Country: ES (occurrence: ES)
  Receive Date: 20221222
  Receipt Date: 20221222
  Transmission Date: 20230113
  Serious: Yes (Death, Hospitalization, Other)
  Sender: FDA-Public Use
  Company Number: ES-JAZZ-2022-ES-038167

PATIENT
  Sex: Male

DRUGS (1)
  1. DEFITELIO [Suspect]
     Active Substance: DEFIBROTIDE SODIUM
     Indication: Prophylaxis
     Dosage: UNK

REACTIONS (2)
  - Venoocclusive disease [Fatal]
  - Off label use [Unknown]

NARRATIVE: CASE EVENT DATE: 20221101
